FAERS Safety Report 5757844-3 (Version None)
Quarter: 2008Q2

REPORT INFORMATION
  Report Type: 
  Country: None (occurrence: None)
  Receive Date: 20080603
  Receipt Date: 20080528
  Transmission Date: 20081010
  Serious: Yes (Hospitalization)
  Sender: FDA-Public Use
  Company Number: PHNU2008DE01917

PATIENT
  Sex: Female

DRUGS (1)
  1. RASILEZ [Suspect]
     Indication: HYPERTENSION
     Dosage: 1 DF, QD
     Route: 048
     Dates: start: 20080301, end: 20080518

REACTIONS (6)
  - ABDOMINAL DISCOMFORT [None]
  - ALTERED STATE OF CONSCIOUSNESS [None]
  - APHASIA [None]
  - BRAIN OEDEMA [None]
  - HYPERNATRAEMIA [None]
  - NAUSEA [None]
